FAERS Safety Report 16467029 (Version 1)
Quarter: 2019Q2

REPORT INFORMATION
  Report Type: Spontaneous
  Country: CN (occurrence: CN)
  Receive Date: 20190624
  Receipt Date: 20190624
  Transmission Date: 20190711
  Serious: Yes (Death, Other)
  Sender: FDA-Public Use
  Company Number: CN-MICRO LABS LIMITED-ML2019-01478

PATIENT

DRUGS (5)
  1. CISPLATIN. [Suspect]
     Active Substance: CISPLATIN
     Indication: OESOPHAGEAL CANCER METASTATIC
     Dosage: 25 MG/M2, ON DAYS 1-3
  2. DEXAMETHASONE. [Suspect]
     Active Substance: DEXAMETHASONE
     Indication: OESOPHAGEAL CANCER METASTATIC
     Dosage: 20MG
     Route: 042
  3. RANITIDINE. [Suspect]
     Active Substance: RANITIDINE
     Indication: OESOPHAGEAL CANCER METASTATIC
     Dosage: 50MG
     Route: 042
  4. PACLITAXEL. [Suspect]
     Active Substance: PACLITAXEL
     Indication: OESOPHAGEAL CANCER METASTATIC
     Dosage: 135 MG/M2 , OVER THREE HOURS ON DAY 1
     Route: 042
  5. DIPHENHYDRAMINE HYDROCHLORIDE. [Suspect]
     Active Substance: DIPHENHYDRAMINE HYDROCHLORIDE
     Indication: OESOPHAGEAL CANCER METASTATIC
     Dosage: 50MG IV
     Route: 042

REACTIONS (1)
  - Death [Fatal]
